FAERS Safety Report 5832263-X (Version None)
Quarter: 2008Q3

REPORT INFORMATION
  Report Type: 
  Country: None (occurrence: None)
  Receive Date: 20080804
  Receipt Date: 20080729
  Transmission Date: 20090109
  Serious: Yes (Life-Threatening, Hospitalization)
  Sender: FDA-Public Use
  Company Number: US-JNJFOC-20070203336

PATIENT
  Sex: Male
  Weight: 34 kg

DRUGS (8)
  1. CHILDREN'S MOTRIN [Suspect]
     Indication: RESPIRATORY DISORDER
  2. CHILDREN'S MOTRIN [Suspect]
     Indication: HEADACHE
     Dosage: UNKNOWN
  3. SULFACETAMIDE [Suspect]
     Indication: EYE PAIN
     Route: 047
  4. SULFACETAMIDE [Suspect]
     Indication: EYE IRRITATION
     Route: 047
  5. SULFACETAMIDE [Suspect]
     Indication: PURULENT DISCHARGE
     Route: 047
  6. EYE DROPS [Concomitant]
     Indication: EYE SWELLING
     Route: 047
  7. EYE DROPS [Concomitant]
     Indication: OCULAR HYPERAEMIA
     Route: 047
  8. PSEUDOEPHEDRINE HCL [Concomitant]
     Indication: COUGH

REACTIONS (1)
  - TOXIC EPIDERMAL NECROLYSIS [None]
